FAERS Safety Report 5271378-4 (Version None)
Quarter: 2007Q1

REPORT INFORMATION
  Report Type: 
  Country: None (occurrence: None)
  Receive Date: 20070315
  Receipt Date: 20070305
  Transmission Date: 20070707
  Serious: Yes (Death, Hospitalization)
  Sender: FDA-Public Use
  Company Number: 15698

PATIENT
  Age: 74 Year
  Sex: Female

DRUGS (3)
  1. CYTARABINE [Suspect]
     Indication: ACUTE MYELOID LEUKAEMIA
     Dosage: 20 MG/M2 QD SC
     Route: 058
     Dates: start: 20070118, end: 20070127
  2. ACYCLOVIR [Concomitant]
  3. CIPROFLOXACIN [Concomitant]

REACTIONS (5)
  - CARDIOPULMONARY FAILURE [None]
  - DISEASE PROGRESSION [None]
  - LEUKOCYTOSIS [None]
  - LUNG INFECTION [None]
  - PNEUMONIA [None]
